FAERS Safety Report 16490637 (Version 1)
Quarter: 2019Q2

REPORT INFORMATION
  Report Type: Report from Study
  Country: None (occurrence: TR)
  Receive Date: 20190628
  Receipt Date: 20190628
  Transmission Date: 20190711
  Serious: Yes (Death)
  Sender: FDA-Public Use
  Company Number: TR-ABBVIE-19K-161-2835692-00

PATIENT
  Sex: Female
  Weight: 72 kg

DRUGS (1)
  1. DUODOPA [Suspect]
     Active Substance: CARBIDOPA\LEVODOPA
     Indication: PARKINSON^S DISEASE
     Dosage: MORNING DOSE (ML): 10,00 CONTINUOUSDOSE (ML): 9,00 EXTRADOSE  (ML): 0,00
     Route: 050
     Dates: start: 20180917

REACTIONS (1)
  - Death [Fatal]
